FAERS Safety Report 21801806 (Version 1)
Quarter: 2022Q4

REPORT INFORMATION
  Report Type: Spontaneous
  Country: US (occurrence: US)
  Receive Date: 20221230
  Receipt Date: 20221230
  Transmission Date: 20230113
  Serious: Yes (Other)
  Sender: FDA-Public Use
  Company Number: US-AMERICAN REGENT INC-2022003687

PATIENT
  Age: 41 Year
  Sex: Female
  Weight: 74.8 kg

DRUGS (13)
  1. VENOFER [Suspect]
     Active Substance: IRON SUCROSE
     Indication: Iron deficiency anaemia
     Dosage: 300 MILLIGRAM, IN SODIUM CHLORIDE 0.9 % 250 ML IVPB SINGLE
     Route: 042
     Dates: start: 20210504, end: 20210504
  2. VENOFER [Suspect]
     Active Substance: IRON SUCROSE
     Dosage: 300 MILLIGRAM, IN SODIUM CHLORIDE 0.9 % 250 ML IVPB SINGLE
     Route: 042
     Dates: start: 20210507, end: 20210507
  3. VENOFER [Suspect]
     Active Substance: IRON SUCROSE
     Dosage: 300 MILLIGRAM, IN SODIUM CHLORIDE 0.9 % 250 ML IVPB SINGLE
     Route: 042
     Dates: start: 20210514, end: 20210514
  4. VENOFER [Suspect]
     Active Substance: IRON SUCROSE
     Dosage: 300 MILLIGRAM, IN SODIUM CHLORIDE 0.9 % 250 ML IVPB SINGLE
     Route: 042
     Dates: start: 20210518, end: 20210518
  5. VENOFER [Suspect]
     Active Substance: IRON SUCROSE
     Dosage: 200 MILLIGRAM, IN SODIUM CHLORIDE 0.9 % 100 ML IVPB SINGLE
     Route: 042
     Dates: start: 20210525, end: 20210525
  6. VENOFER [Suspect]
     Active Substance: IRON SUCROSE
     Dosage: 200 MILLIGRAM, IN SODIUM CHLORIDE 0.9 % 100 ML IVPB SINGLE
     Route: 042
     Dates: start: 20210528, end: 20210528
  7. VENOFER [Suspect]
     Active Substance: IRON SUCROSE
     Dosage: 200 MILLIGRAM, IN SODIUM CHLORIDE 0.9 % 100 ML IVPB SINGLE
     Route: 042
     Dates: start: 20210601, end: 20210601
  8. VITAMIN B12 [Concomitant]
     Active Substance: CYANOCOBALAMIN
     Indication: Pernicious anaemia
     Dosage: 1000 MICROGRAM 1 TABLET
     Route: 060
     Dates: start: 20210121
  9. MOTRIN [Concomitant]
     Active Substance: IBUPROFEN
     Indication: Pain
     Dosage: 200 MILLIGRAM
     Route: 048
  10. HYDROCORTISONE [Concomitant]
     Active Substance: HYDROCORTISONE
     Indication: Product used for unknown indication
     Dosage: 2.5 PERCENT
     Route: 061
  11. METHYLPREDNISOLONE [Concomitant]
     Active Substance: METHYLPREDNISOLONE
     Indication: Product used for unknown indication
     Dosage: 4 MILLIGRAM
     Route: 065
  12. ZOFRAN [Concomitant]
     Active Substance: ONDANSETRON HYDROCHLORIDE
     Indication: Product used for unknown indication
     Dosage: 4 MILLIGRAM EVERY 8 (EIGHT) HOURS PRN
     Route: 048
  13. VITAMIN B12 [Concomitant]
     Active Substance: CYANOCOBALAMIN
     Indication: Pernicious anaemia
     Dosage: 1000 MICROGRAM PER MILLILITRE EVERY 30 (THIRTY) DAYS
     Route: 030

REACTIONS (11)
  - Pallor [Recovered/Resolved]
  - Drug eruption [Recovered/Resolved]
  - Dizziness [Recovered/Resolved]
  - Nausea [Recovered/Resolved]
  - Dyspepsia [Recovered/Resolved]
  - Pruritus [Recovered/Resolved]
  - Infusion site extravasation [Recovered/Resolved]
  - Chest discomfort [Recovered/Resolved]
  - Abdominal discomfort [Recovered/Resolved]
  - Feeling abnormal [Recovered/Resolved]
  - Inappropriate schedule of product administration [Unknown]

NARRATIVE: CASE EVENT DATE: 20210504
